FAERS Safety Report 14847309 (Version 1)
Quarter: 2018Q2

REPORT INFORMATION
  Report Type: Spontaneous
  Country: US (occurrence: US)
  Receive Date: 20180419
  Receipt Date: 20180419
  Transmission Date: 20180711
  Serious: No
  Sender: FDA-Public Use
  Company Number: None

PATIENT
  Age: 65 Year
  Sex: Female
  Weight: 73.89 kg

DRUGS (11)
  1. PIOGLITAZONE 15MG [Concomitant]
     Dates: start: 20170803
  2. MAVYRET [Suspect]
     Active Substance: GLECAPREVIR\PIBRENTASVIR
     Indication: CHRONIC HEPATITIS
     Route: 048
     Dates: start: 20180118, end: 20180315
  3. HYDROXYZINE 10MG [Concomitant]
     Dates: start: 20180124, end: 20180315
  4. CHOLECALCIFEROL 400 UNITS [Concomitant]
     Dates: start: 20170823
  5. DULOXETINE 60MG [Concomitant]
     Active Substance: DULOXETINE
     Dates: start: 20170803
  6. METFORMIN [Concomitant]
     Active Substance: METFORMIN HYDROCHLORIDE
     Dates: start: 20170803
  7. CODEINE/APAP 30/300MG [Concomitant]
     Dates: start: 20081006
  8. TRAZODONE [Concomitant]
     Active Substance: TRAZODONE HYDROCHLORIDE
     Dates: start: 20180117
  9. INSULIN 70/30 [Concomitant]
     Active Substance: INSULIN HUMAN
     Dates: start: 20170823
  10. NITROFURANTOIN SA 100MG [Concomitant]
     Dates: start: 20180124, end: 20180129
  11. LORATADINE 10MG [Concomitant]
     Active Substance: LORATADINE
     Dates: start: 20180124

REACTIONS (1)
  - Pruritus [None]

NARRATIVE: CASE EVENT DATE: 20180124
